FAERS Safety Report 8806125 (Version 2)
Quarter: 2012Q4

REPORT INFORMATION
  Report Type: Spontaneous
  Country: JP (occurrence: None)
  Receive Date: 20120918
  Receipt Date: 20120926
  Transmission Date: 20130627
  Serious: Yes (Other)
  Sender: FDA-Public Use
  Company Number: ABR_00627_2012

PATIENT

DRUGS (3)
  1. ERYTHROMYCIN [Suspect]
     Indication: DIFFUSE PANBRONCHIOLITIS
     Dosage: (DF), [Long-term therapy])
  2. ERYTHROMYCIN [Suspect]
     Dosage: (DF), [Long-term therapy])
  3. CLARITHROMYCIN (CLARITHROMYCIN) [Suspect]
     Dosage: (DF)

REACTIONS (1)
  - Drug resistance [None]
